FAERS Safety Report 7643008-5 (Version None)
Quarter: 2011Q3

REPORT INFORMATION
  Report Type: 
  Country: None (occurrence: None)
  Receive Date: 20110728
  Receipt Date: 20110722
  Transmission Date: 20111222
  Serious: Yes (Hospitalization)
  Sender: FDA-Public Use
  Company Number: FR-MERCK-1107USA03490

PATIENT
  Age: 37 Year
  Sex: Female

DRUGS (6)
  1. ATORVASTATIN CALCIUM [Concomitant]
     Indication: DYSLIPIDAEMIA
     Route: 065
  2. LEVOTHYROXINE SODIUM [Concomitant]
     Indication: HYPOTHYROIDISM
     Route: 048
  3. CITALOPRAM [Concomitant]
     Indication: EX-TOBACCO USER
     Route: 048
     Dates: end: 20110519
  4. JANUVIA [Suspect]
     Indication: TYPE 2 DIABETES MELLITUS
     Route: 048
     Dates: start: 20091215, end: 20110201
  5. METFORMIN [Concomitant]
     Indication: TYPE 2 DIABETES MELLITUS
     Route: 065
     Dates: start: 20100325, end: 20110201
  6. NEXIUM [Concomitant]
     Dosage: ONE GASTRO RESISTANT TABLET PER DAY
     Route: 065

REACTIONS (1)
  - SEPSIS [None]
